FAERS Safety Report 5787876-0 (Version None)
Quarter: 2008Q2

REPORT INFORMATION
  Report Type: 
  Country: None (occurrence: None)
  Receive Date: 20080625
  Receipt Date: 20080614
  Transmission Date: 20081010
  Serious: Yes (Death, Life-Threatening, Hospitalization)
  Sender: FDA-Public Use
  Company Number: CO-ROCHE-563038

PATIENT
  Age: 57 Year
  Sex: Female
  Weight: 45 kg

DRUGS (5)
  1. PEG-INTERFERON A-2A (RO 25-8310) [Suspect]
     Indication: HEPATITIS C
     Route: 058
     Dates: start: 20020101, end: 20030101
  2. PEG-INTERFERON A-2A (RO 25-8310) [Suspect]
     Dosage: STRENGTH: 180MCG SYRINGES, DOSAGE: WEEKLY
     Route: 058
     Dates: start: 20051213, end: 20061107
  3. PEG-INTERFERON A-2A (RO 25-8310) [Suspect]
     Dosage: STRENGTH: 360 MCG SYRINGES, DOSAGE: WEEKLY
     Route: 058
     Dates: start: 20070416, end: 20070702
  4. PEG-INTERFERON A-2A (RO 25-8310) [Suspect]
     Dosage: STRENGTH: 180MCG SYRINGES, DOSAGE: WEEKLY
     Route: 058
     Dates: start: 20070709, end: 20080209
  5. RIBAVIRIN [Concomitant]
     Indication: HEPATITIS C
     Dosage: DRUG REPORTED: RIVABIRIN
     Route: 048
     Dates: start: 20070416, end: 20080209

REACTIONS (7)
  - ANAEMIA [None]
  - ASCITES [None]
  - DRUG INEFFECTIVE [None]
  - HEPATIC ENCEPHALOPATHY [None]
  - MELAENA [None]
  - MENINGITIS [None]
  - PNEUMONIA [None]
